FAERS Safety Report 15580541 (Version 1)
Quarter: 2018Q4

REPORT INFORMATION
  Report Type: Spontaneous
  Country: ES (occurrence: ES)
  Receive Date: 20181102
  Receipt Date: 20181102
  Transmission Date: 20190205
  Serious: Yes (Disabling, Other)
  Sender: FDA-Public Use
  Company Number: ES-ASTRAZENECA-2018SF41338

PATIENT
  Age: 44 Year
  Sex: Male

DRUGS (3)
  1. LORAZEPAM. [Concomitant]
     Active Substance: LORAZEPAM
     Dosage: 2.5 MG IN THE MORNINGS AND 2.5 MG AT NIGHTS
  2. FUROSEMIDE. [Concomitant]
     Active Substance: FUROSEMIDE
     Dosage: 40 MG ONCE A DAY
  3. SEROQUEL [Suspect]
     Active Substance: QUETIAPINE FUMARATE
     Indication: DEPRESSION
     Route: 048
     Dates: start: 2008

REACTIONS (14)
  - Mydriasis [Unknown]
  - Libido decreased [Unknown]
  - Product use issue [Unknown]
  - Amnesia [Unknown]
  - Nausea [Unknown]
  - Depressed mood [Unknown]
  - Diplopia [Unknown]
  - Electrocardiogram QT prolonged [Unknown]
  - Depression [Unknown]
  - Dry eye [Unknown]
  - Headache [Unknown]
  - Photophobia [Unknown]
  - Tinnitus [Unknown]
  - Off label use [Unknown]
